FAERS Safety Report 20663947 (Version 1)
Quarter: 2022Q2

REPORT INFORMATION
  Report Type: Spontaneous
  Country: US (occurrence: None)
  Receive Date: 20220401
  Receipt Date: 20220401
  Transmission Date: 20220720
  Serious: Yes (Other)
  Sender: FDA-Public Use
  Company Number: None

PATIENT
  Age: 61 Year
  Sex: Female
  Weight: 83.25 kg

DRUGS (31)
  1. RINVOQ [Suspect]
     Active Substance: UPADACITINIB
     Indication: Rheumatoid arthritis
     Route: 048
     Dates: start: 20211002, end: 20211105
  2. QUETIAPINE [Concomitant]
     Active Substance: QUETIAPINE
  3. HYDROXYZINE PAMOATE [Concomitant]
     Active Substance: HYDROXYZINE PAMOATE
  4. DIAZEPAM [Concomitant]
     Active Substance: DIAZEPAM
  5. BELSOMRA [Concomitant]
     Active Substance: SUVOREXANT
  6. Estrogen + Testosterone [Concomitant]
  7. Pellet implant [Concomitant]
  8. SPIRONOLACTONE [Concomitant]
     Active Substance: SPIRONOLACTONE
  9. ARMOUR THYROID [Concomitant]
     Active Substance: THYROID, PORCINE
  10. SOLIFENACIN [Concomitant]
     Active Substance: SOLIFENACIN
  11. AZELASTINE HYDROCHLORIDE [Concomitant]
     Active Substance: AZELASTINE HYDROCHLORIDE
  12. UNSPECIFIED INGREDIENT [Concomitant]
     Active Substance: UNSPECIFIED INGREDIENT
  13. MONTELUKAST [Concomitant]
     Active Substance: MONTELUKAST SODIUM
  14. GABAPENTIN [Concomitant]
     Active Substance: GABAPENTIN
  15. NALBUPHINE HYDROCHLORIDE [Concomitant]
     Active Substance: NALBUPHINE HYDROCHLORIDE
  16. SAVELLA [Concomitant]
     Active Substance: MILNACIPRAN HYDROCHLORIDE
  17. HYDROXYCHLOROQUINE [Concomitant]
     Active Substance: HYDROXYCHLOROQUINE
  18. TIZANIDINE [Concomitant]
     Active Substance: TIZANIDINE
  19. VITAMIN D3 [Concomitant]
     Active Substance: CHOLECALCIFEROL
  20. L-Methyl Folate [Concomitant]
  21. HERBALS\TURMERIC [Concomitant]
     Active Substance: HERBALS\TURMERIC
  22. 3,3^-DIINDOLYLMETHANE [Concomitant]
     Active Substance: 3,3^-DIINDOLYLMETHANE
  23. PRASTERONE [Concomitant]
     Active Substance: PRASTERONE
  24. PROBIOTICS NOS [Concomitant]
     Active Substance: PROBIOTICS NOS
  25. FISH OIL [Concomitant]
     Active Substance: FISH OIL
  26. VITAMIN A [Concomitant]
     Active Substance: VITAMIN A
  27. Multivitamin + iron [Concomitant]
  28. USRDA [Concomitant]
  29. STOOL SOFTENER (DOCUSATE) [Concomitant]
     Active Substance: DOCUSATE
  30. BIOTIN [Concomitant]
     Active Substance: BIOTIN
  31. CALCIUM CITRATE [Concomitant]
     Active Substance: CALCIUM CITRATE

REACTIONS (2)
  - Constipation [None]
  - Ulcer [None]

NARRATIVE: CASE EVENT DATE: 20220110
